FAERS Safety Report 15233178 (Version 1)
Quarter: 2018Q3

REPORT INFORMATION
  Report Type: Spontaneous
  Country: ID (occurrence: ID)
  Receive Date: 20180802
  Receipt Date: 20180802
  Transmission Date: 20181010
  Serious: Yes (Other)
  Sender: FDA-Public Use
  Company Number: ID-ASTRAZENECA-2018SE95261

PATIENT
  Age: 30 Year
  Sex: Female

DRUGS (3)
  1. DISFLATYL [Concomitant]
     Active Substance: DIMETHICONE
  2. NEXIUM [Suspect]
     Active Substance: ESOMEPRAZOLE MAGNESIUM
     Indication: CHRONIC GASTRITIS
     Route: 048
  3. NEXIUM [Suspect]
     Active Substance: ESOMEPRAZOLE MAGNESIUM
     Indication: CHRONIC GASTRITIS
     Route: 048

REACTIONS (6)
  - Abdominal pain [Unknown]
  - Product use issue [Recovered/Resolved]
  - Overdose [Recovered/Resolved]
  - Asthenia [Unknown]
  - Dizziness [Unknown]
  - Off label use [Recovered/Resolved]

NARRATIVE: CASE EVENT DATE: 20180716
